FAERS Safety Report 24137822 (Version 1)
Quarter: 2024Q3

REPORT INFORMATION
  Report Type: Spontaneous
  Country: US (occurrence: None)
  Receive Date: 20240725
  Receipt Date: 20240725
  Transmission Date: 20241017
  Serious: Yes (Other)
  Sender: Public
  Company Number: None

PATIENT
  Age: 26 Year
  Sex: Female
  Weight: 69.75 kg

DRUGS (2)
  1. MICONAZOLE [Suspect]
     Active Substance: MICONAZOLE\MICONAZOLE NITRATE
     Indication: Fungal infection
     Dates: start: 20240724, end: 20240725
  2. ADDERALL [Concomitant]
     Active Substance: AMPHETAMINE ASPARTATE\AMPHETAMINE SULFATE\DEXTROAMPHETAMINE SACCHARATE\DEXTROAMPHETAMINE SULFATE

REACTIONS (3)
  - Vulvovaginal burning sensation [None]
  - Vulvovaginal pain [None]
  - Crying [None]

NARRATIVE: CASE EVENT DATE: 20240725
